FAERS Safety Report 21523597 (Version 2)
Quarter: 2023Q1

REPORT INFORMATION
  Report Type: Spontaneous
  Country: CO (occurrence: CO)
  Receive Date: 20221029
  Receipt Date: 20230119
  Transmission Date: 20230417
  Serious: Yes (Other)
  Sender: FDA-Public Use
  Company Number: CO-AMGEN-COLSP2022181687

PATIENT
  Age: 64 Year
  Sex: Female
  Weight: 51 kg

DRUGS (8)
  1. MVASI [Suspect]
     Active Substance: BEVACIZUMAB-AWWB
     Indication: Female reproductive neoplasm
     Dosage: 750 MILLIGRAM, QD
     Route: 040
     Dates: start: 20220902
  2. PEGFILGRASTIM [Suspect]
     Active Substance: PEGFILGRASTIM
     Indication: Ovarian cancer
     Dosage: 6 MILLIGRAM, QD
     Route: 058
     Dates: start: 20220902
  3. CARBOPLATIN [Concomitant]
     Active Substance: CARBOPLATIN
     Indication: Ovarian cancer
     Dosage: 500 MILLIGRAM, QD
     Route: 040
     Dates: start: 20220902
  4. FOSAPREPITANT [Concomitant]
     Active Substance: FOSAPREPITANT
     Indication: Ovarian cancer
     Dosage: 150 MILLIGRAM, QD
     Route: 040
     Dates: start: 20220902
  5. ONDANSETRON [Concomitant]
     Active Substance: ONDANSETRON
     Indication: Ovarian cancer
     Dosage: 16 MILLIGRAM, QD
     Route: 040
     Dates: start: 20220902
  6. PALONOSETRON [Concomitant]
     Active Substance: PALONOSETRON
     Indication: Ovarian cancer
     Dosage: 25 MILLIGRAM, QD
     Route: 040
     Dates: start: 20220902
  7. DEXAMETHASONE PHOSPHATE [Concomitant]
     Active Substance: DEXAMETHASONE PHOSPHATE
     Indication: Ovarian cancer
     Dosage: 8 MILLIGRAM, QD
     Route: 040
     Dates: start: 20220902
  8. PACLITAXEL [Concomitant]
     Active Substance: PACLITAXEL
     Indication: Ovarian cancer
     Dosage: 262.5 MILLIGRAM, QD
     Route: 040
     Dates: start: 20220902

REACTIONS (5)
  - Neuropathy peripheral [Unknown]
  - Nausea [Recovering/Resolving]
  - Headache [Recovering/Resolving]
  - Diarrhoea [Recovering/Resolving]
  - Vomiting [Recovering/Resolving]

NARRATIVE: CASE EVENT DATE: 20220902
